FAERS Safety Report 11414579 (Version 1)
Quarter: 2015Q3

REPORT INFORMATION
  Report Type: Spontaneous
  Country: AU (occurrence: AU)
  Receive Date: 20150825
  Receipt Date: 20150825
  Transmission Date: 20151125
  Serious: Yes (Other)
  Sender: FDA-Public Use
  Company Number: AU-ROCHE-1621136

PATIENT
  Age: 73 Year
  Sex: Male

DRUGS (2)
  1. GAZYVA [Suspect]
     Active Substance: OBINUTUZUMAB
     Dosage: RESTARTED AT 12/5 MG/HOUR
     Route: 042
     Dates: start: 20150813
  2. GAZYVA [Suspect]
     Active Substance: OBINUTUZUMAB
     Indication: PRODUCT USED FOR UNKNOWN INDICATION
     Dosage: FIRST DOSE: 8-10 ML, DOSE  INTERRUPTED
     Route: 042

REACTIONS (12)
  - Renal failure [Unknown]
  - Chills [Unknown]
  - Flushing [Unknown]
  - Vision blurred [Recovered/Resolved]
  - Tumour lysis syndrome [Unknown]
  - Back pain [Unknown]
  - Palpitations [Unknown]
  - Dizziness [Recovered/Resolved]
  - Body temperature increased [Unknown]
  - Throat tightness [Recovered/Resolved]
  - Dyspnoea [Unknown]
  - Nausea [Unknown]
